FAERS Safety Report 15209057 (Version 1)
Quarter: 2018Q3

REPORT INFORMATION
  Report Type: Spontaneous
  Country: FR (occurrence: FR)
  Receive Date: 20180727
  Receipt Date: 20180727
  Transmission Date: 20181010
  Serious: Yes (Other)
  Sender: FDA-Public Use
  Company Number: FR-JNJFOC-20180723711

PATIENT

DRUGS (5)
  1. LINEZOLID. [Suspect]
     Active Substance: LINEZOLID
     Indication: TUBERCULOSIS
     Route: 065
  2. CLOFAZIMINE [Suspect]
     Active Substance: CLOFAZIMINE
     Indication: TUBERCULOSIS
     Route: 065
  3. SIRTURO [Suspect]
     Active Substance: BEDAQUILINE FUMARATE
     Indication: TUBERCULOSIS
     Dosage: 6 MONTHS
     Route: 048
  4. AMOXICILLIN AND CLAVULANATE POTASSIUM [Suspect]
     Active Substance: AMOXICILLIN\CLAVULANATE POTASSIUM
     Indication: TUBERCULOSIS
     Route: 065
  5. IMIPENEM [Suspect]
     Active Substance: IMIPENEM
     Indication: TUBERCULOSIS
     Route: 065

REACTIONS (19)
  - Eye disorder [Unknown]
  - Musculoskeletal disorder [Unknown]
  - Nephropathy toxic [Unknown]
  - Ototoxicity [Unknown]
  - Skin disorder [Unknown]
  - Nervous system disorder [Unknown]
  - Drug intolerance [Unknown]
  - Blood magnesium decreased [Unknown]
  - Lipase increased [Unknown]
  - Electrocardiogram QT prolonged [Unknown]
  - Respiratory disorder [Unknown]
  - Blood disorder [Unknown]
  - Gastrointestinal toxicity [Unknown]
  - Cardiac disorder [Unknown]
  - Hepatotoxicity [Unknown]
  - Neuropathy peripheral [Unknown]
  - Hypotension [Unknown]
  - Hypersensitivity [Unknown]
  - Headache [Unknown]
